FAERS Safety Report 14973878 (Version 1)
Quarter: 2018Q2

REPORT INFORMATION
  Report Type: Spontaneous
  Country: US (occurrence: US)
  Receive Date: 20180514
  Receipt Date: 20180514
  Transmission Date: 20180711
  Serious: Yes (Other)
  Sender: FDA-Public Use
  Company Number: None

PATIENT
  Age: 31 Month
  Sex: Female

DRUGS (1)
  1. VIGABATRIN. [Suspect]
     Active Substance: VIGABATRIN
     Indication: SEIZURE
     Dosage: ?          OTHER FREQUENCY:2 DAILY AM AND PM;?
     Route: 048
     Dates: start: 20160726

REACTIONS (3)
  - Product quality issue [None]
  - Product container issue [None]
  - Seizure [None]

NARRATIVE: CASE EVENT DATE: 20180502
